FAERS Safety Report 4809022-X (Version None)
Quarter: 2005Q4

REPORT INFORMATION
  Report Type: 
  Country: None (occurrence: None)
  Receive Date: 20051021
  Receipt Date: 20040121
  Transmission Date: 20060501
  Serious: Yes (Life-Threatening)
  Sender: FDA-Public Use
  Company Number: GBS040114320

PATIENT
  Age: 74 Year
  Sex: Female

DRUGS (7)
  1. OLANZAPINE [Suspect]
     Indication: PSYCHOTIC DISORDER
     Dosage: 10 MG
     Route: 048
     Dates: start: 20031105, end: 20031202
  2. BENDROFLUAZIDE [Concomitant]
  3. OMEPRAZOLE [Concomitant]
  4. CARBAMAZEPINE [Concomitant]
  5. ZOPLICONE [Concomitant]
  6. THYROXINE [Concomitant]
  7. FLUPENTIXOL DECANOATE [Concomitant]

REACTIONS (1)
  - THROMBOCYTOPENIA [None]
